FAERS Safety Report 6401266-9 (Version None)
Quarter: 2009Q4

REPORT INFORMATION
  Report Type: 
  Country: None (occurrence: None)
  Receive Date: 20091009
  Receipt Date: 20091009
  Transmission Date: 20100525
  Serious: No
  Sender: FDA-Public Use
  Company Number: None

PATIENT
  Age: 74 Year
  Sex: Female
  Weight: 68.0396 kg

DRUGS (1)
  1. METFORMIN XL 500 TWICE DAILY 500MG 2 TIMES A DAY [Suspect]
     Indication: TYPE 2 DIABETES MELLITUS
     Dates: start: 20051001, end: 20090801

REACTIONS (5)
  - ABDOMINAL DISCOMFORT [None]
  - IRRITABLE BOWEL SYNDROME [None]
  - MUSCLE SPASMS [None]
  - RESTLESS LEGS SYNDROME [None]
  - THERAPEUTIC RESPONSE UNEXPECTED [None]
